FAERS Safety Report 5312743-6 (Version None)
Quarter: 2007Q2

REPORT INFORMATION
  Report Type: 
  Country: None (occurrence: None)
  Receive Date: 20070430
  Receipt Date: 20070425
  Transmission Date: 20071010
  Serious: No
  Sender: FDA-Public Use
  Company Number: KP-ELI_LILLY_AND_COMPANY-KR200704002577

PATIENT
  Age: 77 Year
  Sex: Female
  Weight: 62 kg

DRUGS (4)
  1. AMARYL [Concomitant]
     Indication: DIABETES MELLITUS
     Dosage: 4 MG, DAILY (1/D)
     Route: 048
     Dates: start: 20011026
  2. NICARDIPINE HYDROCHLORIDE [Concomitant]
     Indication: HYPERTENSION
     Dosage: 80 MG, DAILY (1/D)
     Route: 048
     Dates: start: 20011026
  3. GLUCAMINOL [Concomitant]
     Indication: DIABETES MELLITUS
     Dosage: 2 G, DAILY (1/D)
     Route: 048
     Dates: start: 20011026
  4. RALOXIFENE HCL [Suspect]
     Indication: OSTEOPOROSIS POSTMENOPAUSAL
     Dosage: 60 MG, DAILY (1/D)
     Route: 048
     Dates: start: 20011204, end: 20020420

REACTIONS (2)
  - ANOREXIA [None]
  - PALPITATIONS [None]
